FAERS Safety Report 20952942 (Version 3)
Quarter: 2022Q3

REPORT INFORMATION
  Report Type: Spontaneous
  Country: TR (occurrence: TR)
  Receive Date: 20220613
  Receipt Date: 20220721
  Transmission Date: 20221027
  Serious: Yes (Other)
  Sender: FDA-Public Use
  Company Number: TR-009507513-2206TUR002997

PATIENT
  Age: 94 Year
  Sex: Female

DRUGS (3)
  1. INVANZ [Suspect]
     Active Substance: ERTAPENEM SODIUM
     Indication: Urinary tract infection
     Dosage: UNK
     Route: 042
     Dates: start: 20220603, end: 20220609
  2. OKSAPAR [Concomitant]
     Dosage: UNK
     Route: 058
     Dates: start: 20220603
  3. ULCEZOL [PANTOPRAZOLE SODIUM SESQUIHYDRATE] [Concomitant]
     Dosage: UNK
     Route: 042
     Dates: start: 20220603

REACTIONS (1)
  - Leukopenia [Recovered/Resolved]

NARRATIVE: CASE EVENT DATE: 20220604
